FAERS Safety Report 22237743 (Version 1)
Quarter: 2023Q2

REPORT INFORMATION
  Report Type: Spontaneous
  Country: DE (occurrence: DE)
  Receive Date: 20230421
  Receipt Date: 20230421
  Transmission Date: 20230722
  Serious: Yes (Other)
  Sender: FDA-Public Use
  Company Number: DE-KOREA IPSEN Pharma-2023-06978

PATIENT
  Age: 32 Year
  Sex: Female

DRUGS (2)
  1. DYSPORT [Suspect]
     Active Substance: ABOBOTULINUMTOXINA
     Indication: Weight decreased
  2. DYSPORT [Suspect]
     Active Substance: ABOBOTULINUMTOXINA
     Indication: Off label use

REACTIONS (5)
  - Botulism [Unknown]
  - Visual impairment [Unknown]
  - Dyspnoea [Unknown]
  - Dysphagia [Unknown]
  - Off label use [Unknown]
